FAERS Safety Report 7994412-7 (Version None)
Quarter: 2011Q4

REPORT INFORMATION
  Report Type: 
  Country: None (occurrence: None)
  Receive Date: 20111220
  Receipt Date: 20111025
  Transmission Date: 20120403
  Serious: Yes (Other)
  Sender: FDA-Public Use
  Company Number: US-NAPPMUNDI-USA-2011-0079744

PATIENT
  Sex: Male

DRUGS (3)
  1. OXYCONTIN [Suspect]
     Indication: ARTHRALGIA
  2. OXYCONTIN [Suspect]
     Indication: BACK INJURY
     Dosage: UNK
     Dates: start: 20020917, end: 20041115
  3. OXYCONTIN [Suspect]
     Indication: INTERVERTEBRAL DISC PROTRUSION

REACTIONS (3)
  - UNEVALUABLE EVENT [None]
  - TOOTH INFECTION [None]
  - TOOTH LOSS [None]
